FAERS Safety Report 24713790 (Version 1)
Quarter: 2024Q4

REPORT INFORMATION
  Report Type: Spontaneous
  Country: FR (occurrence: FR)
  Receive Date: 20241209
  Receipt Date: 20241209
  Transmission Date: 20250114
  Serious: Yes (Other)
  Sender: HILL DERMACEUTICALS, INC.
  Company Number: FR-Hill Dermaceuticals, Inc.-2166766

PATIENT
  Age: 79 Year
  Sex: Male

DRUGS (1)
  1. TOLAK [Suspect]
     Active Substance: FLUOROURACIL
     Indication: Product used for unknown indication
     Dates: start: 20241101, end: 20241119

REACTIONS (6)
  - Toxic skin eruption [Not Recovered/Not Resolved]
  - Off label use [Unknown]
  - Product use issue [Unknown]
  - Pustule [Not Recovered/Not Resolved]
  - Scab [Not Recovered/Not Resolved]
  - Erythema [Not Recovered/Not Resolved]

NARRATIVE: CASE EVENT DATE: 20241108
